FAERS Safety Report 20255612 (Version 2)
Quarter: 2022Q1

REPORT INFORMATION
  Report Type: Spontaneous
  Country: CA (occurrence: CA)
  Receive Date: 20211230
  Receipt Date: 20220110
  Transmission Date: 20220423
  Serious: Yes (Other)
  Sender: FDA-Public Use
  Company Number: None

PATIENT
  Age: 67 Year
  Sex: Male

DRUGS (17)
  1. HYDROXYCHLOROQUINE SULFATE [Suspect]
     Active Substance: HYDROXYCHLOROQUINE SULFATE
     Indication: Product used for unknown indication
  2. METHOTREXATE [Suspect]
     Active Substance: METHOTREXATE
     Indication: Product used for unknown indication
  3. ARAVA [Suspect]
     Active Substance: LEFLUNOMIDE
     Indication: Product used for unknown indication
  4. CELECOXIB [Suspect]
     Active Substance: CELECOXIB
     Indication: Product used for unknown indication
     Route: 065
  5. PLAQUENIL [Suspect]
     Active Substance: HYDROXYCHLOROQUINE SULFATE
     Indication: Product used for unknown indication
     Dosage: THERAPY DURATION-59.0
     Route: 065
  6. ALLOPURINOL [Concomitant]
     Active Substance: ALLOPURINOL
     Route: 065
  7. AMIODARONE [Concomitant]
     Active Substance: AMIODARONE
     Route: 065
  8. APIXABAN [Concomitant]
     Active Substance: APIXABAN
     Route: 065
  9. CARVEDILOL [Concomitant]
     Active Substance: CARVEDILOL
     Route: 065
  10. COLCHICINE [Concomitant]
     Active Substance: COLCHICINE
     Route: 065
  11. EZETIMIBE [Concomitant]
     Active Substance: EZETIMIBE
     Route: 065
  12. LASIX [Concomitant]
     Active Substance: FUROSEMIDE
     Route: 065
  13. MELOXICAM [Concomitant]
     Active Substance: MELOXICAM
     Route: 065
  14. METFORMIN [Concomitant]
     Active Substance: METFORMIN HYDROCHLORIDE
     Route: 065
  15. PANTOPRAZOLE SODIUM [Concomitant]
     Active Substance: PANTOPRAZOLE SODIUM
     Route: 065
  16. PREDNISONE [Concomitant]
     Active Substance: PREDNISONE
     Route: 065
  17. SACUBITRIL\VALSARTAN [Concomitant]
     Active Substance: SACUBITRIL\VALSARTAN
     Route: 065

REACTIONS (6)
  - Rheumatoid arthritis [Unknown]
  - Diarrhoea [Unknown]
  - Alcohol abuse [Unknown]
  - C-reactive protein increased [Unknown]
  - Drug ineffective [Unknown]
  - Drug intolerance [Unknown]
